FAERS Safety Report 25504750 (Version 1)
Quarter: 2025Q3

REPORT INFORMATION
  Report Type: Spontaneous
  Country: US (occurrence: US)
  Receive Date: 20250702
  Receipt Date: 20250702
  Transmission Date: 20251021
  Serious: No
  Sender: BAYER HEALTHCARE PHARMACEUTICALS INC.
  Company Number: US-BAYER-2025A034862

PATIENT
  Age: 39 Year
  Sex: Female
  Weight: 83.91 kg

DRUGS (2)
  1. MIRENA [Suspect]
     Active Substance: LEVONORGESTREL
     Indication: Contraception
     Dosage: 20?G/DAY
     Route: 015
     Dates: start: 201707
  2. STELARA [Concomitant]
     Active Substance: USTEKINUMAB

REACTIONS (3)
  - Gastrointestinal disorder [None]
  - Abdominal pain lower [None]
  - Weight fluctuation [None]
